FAERS Safety Report 14963079 (Version 1)
Quarter: 2018Q2

REPORT INFORMATION
  Report Type: Spontaneous
  Country: US (occurrence: US)
  Receive Date: 20180601
  Receipt Date: 20180601
  Transmission Date: 20180711
  Serious: No
  Sender: FDA-Public Use
  Company Number: US-009507513-1805USA002519

PATIENT
  Age: 51 Year
  Sex: Female

DRUGS (3)
  1. TEMODAR [Suspect]
     Active Substance: TEMOZOLOMIDE
     Indication: GLIOBLASTOMA
     Dosage: UNK
     Route: 048
  2. TEMODAR [Suspect]
     Active Substance: TEMOZOLOMIDE
     Dosage: 300 MG X 5 DAYS, MAINTENANCE
     Route: 048
  3. CETUXIMAB. [Concomitant]
     Active Substance: CETUXIMAB
     Indication: GLIOBLASTOMA
     Dosage: UNK
     Route: 013

REACTIONS (1)
  - Nausea [Unknown]
